FAERS Safety Report 9233840 (Version 1)
Quarter: 2013Q2

REPORT INFORMATION
  Report Type: Spontaneous
  Country: US (occurrence: GB)
  Receive Date: 20130416
  Receipt Date: 20130416
  Transmission Date: 20140414
  Serious: No
  Sender: FDA-Public Use
  Company Number: US-BANPHARM-20120079

PATIENT
  Age: 75 Year
  Sex: Female
  Weight: 56 kg

DRUGS (3)
  1. ALEVE LIQUID GELS 220 MG [Suspect]
     Indication: HEADACHE
     Dosage: 220 MG, ONCE,
     Route: 048
     Dates: start: 20120813, end: 20120813
  2. THYROID MEDICATION [Concomitant]
  3. ADVIL [Concomitant]

REACTIONS (1)
  - Drug ineffective [Unknown]
